FAERS Safety Report 23555632 (Version 1)
Quarter: 2024Q1

REPORT INFORMATION
  Report Type: Report from Study
  Country: US (occurrence: US)
  Receive Date: 20240222
  Receipt Date: 20240222
  Transmission Date: 20240409
  Serious: Yes (Other)
  Sender: FDA-Public Use
  Company Number: US-ZENPEP LLC-2024AIMT00233

PATIENT

DRUGS (2)
  1. ZENPEP [Suspect]
     Active Substance: PANCRELIPASE AMYLASE\PANCRELIPASE LIPASE\PANCRELIPASE PROTEASE
     Indication: Pancreatic failure
     Dosage: 10 000 USP UNITS CAPSULE BOTTLE 100
     Route: 048
     Dates: start: 2004
  2. ZENPEP [Suspect]
     Active Substance: PANCRELIPASE AMYLASE\PANCRELIPASE LIPASE\PANCRELIPASE PROTEASE
     Dosage: 10 000 USP UNITS, ONCE, LAST DOSE PRIOR EVENTS
     Route: 048

REACTIONS (9)
  - Pancreatitis [Not Recovered/Not Resolved]
  - Irritable bowel syndrome [Not Recovered/Not Resolved]
  - Cholelithiasis [Not Recovered/Not Resolved]
  - Feeding disorder [Not Recovered/Not Resolved]
  - Nausea [Not Recovered/Not Resolved]
  - Odynophagia [Not Recovered/Not Resolved]
  - Pancreatic enzyme abnormality [Not Recovered/Not Resolved]
  - Stent placement [Not Recovered/Not Resolved]
  - Constipation [Not Recovered/Not Resolved]
